FAERS Safety Report 4694591-3 (Version None)
Quarter: 2005Q2

REPORT INFORMATION
  Report Type: 
  Country: None (occurrence: None)
  Receive Date: 20050620
  Receipt Date: 20050616
  Transmission Date: 20051028
  Serious: Yes (Life-Threatening)
  Sender: FDA-Public Use
  Company Number: JP-BRISTOL-MYERS SQUIBB COMPANY-13007083

PATIENT
  Age: 58 Year
  Sex: Male

DRUGS (7)
  1. ZERIT [Suspect]
     Indication: HIV INFECTION
     Dosage: 04-AUG-2000 TO 29-AUG-2000, 04-SEP-2000 TO 28-MAY-2000, 02-JUN-2004
     Route: 048
     Dates: start: 20000804
  2. EPIVIR [Suspect]
     Indication: HIV INFECTION
     Dosage: 19-JUL-2000 TO 29-AUG-2000, 04-SEP-2000 TO 28-MAY-2004, 02-JUN-2004
     Route: 048
     Dates: start: 20000719
  3. VIRACEPT [Suspect]
     Indication: HIV INFECTION
     Dosage: 16-OCT-2000 TO 28-MAY-2004, 02-JUN-2004 TO 15-SEP-2004
     Route: 048
     Dates: start: 20001016, end: 20040915
  4. REYATAZ [Concomitant]
     Route: 048
     Dates: start: 20040916
  5. RETROVIR [Concomitant]
     Route: 048
     Dates: start: 20000719, end: 20000803
  6. CRIXIVAN [Concomitant]
     Dosage: 04-SEP-2000 TO 12-SEP-2000, THEN 13-SEP-2000 TO 15-OCT-2000
     Route: 048
     Dates: start: 20000719, end: 20001015
  7. NORVIR [Concomitant]
     Dosage: 19-JUL-2000 TO 29-AUG-2000, RESTARTED 04-SEP-2000 TO 15-OCT-2000
     Route: 048
     Dates: start: 20000719, end: 20001015

REACTIONS (1)
  - ACUTE MYOCARDIAL INFARCTION [None]
